FAERS Safety Report 9616061 (Version 1)
Quarter: 2013Q4

REPORT INFORMATION
  Report Type: Spontaneous
  Country: SE (occurrence: SE)
  Receive Date: 20131011
  Receipt Date: 20131011
  Transmission Date: 20140711
  Serious: Yes (Hospitalization)
  Sender: FDA-Public Use
  Company Number: SE-009507513-1310SWE002963

PATIENT
  Age: 73 Year
  Sex: Female

DRUGS (9)
  1. MIRTAZAPINE [Suspect]
     Dosage: 30 MG, QD
     Route: 048
     Dates: start: 201307
  2. ENALAPRIL MALEATE [Concomitant]
  3. XALATAN [Concomitant]
  4. OMEPRAZOLE [Concomitant]
  5. METOPROLOL [Concomitant]
  6. AMLODIPINE [Concomitant]
  7. SOBRIL [Concomitant]
  8. IMOVANE [Concomitant]
  9. LOPERAMID [Concomitant]

REACTIONS (2)
  - Hyponatraemia [Unknown]
  - Hyperkalaemia [Unknown]
